FAERS Safety Report 18750640 (Version 1)
Quarter: 2021Q1

REPORT INFORMATION
  Report Type: Spontaneous
  Country: US (occurrence: US)
  Receive Date: 20210118
  Receipt Date: 20210118
  Transmission Date: 20210419
  Serious: Yes (Other)
  Sender: FDA-Public Use
  Company Number: US-HORIZON-2021HZN00337

PATIENT
  Age: 19 Year
  Sex: Female

DRUGS (1)
  1. RAVICTI [Suspect]
     Active Substance: GLYCEROL PHENYLBUTYRATE
     Indication: ORNITHINE TRANSCARBAMOYLASE DEFICIENCY
     Dosage: 3.5 ML ORAL 3 TIMES DAILY ; TIME INTERVAL: 0.33 D
     Route: 050
     Dates: start: 201507

REACTIONS (5)
  - Lethargy [Unknown]
  - Blood iron decreased [Unknown]
  - Weight decreased [Unknown]
  - Ammonia increased [Unknown]
  - Food refusal [Unknown]
